FAERS Safety Report 24400291 (Version 1)
Quarter: 2024Q4

REPORT INFORMATION
  Report Type: Spontaneous
  Country: FR (occurrence: FR)
  Receive Date: 20241005
  Receipt Date: 20241005
  Transmission Date: 20250115
  Serious: Yes (Hospitalization)
  Sender: TEVA
  Company Number: None

PATIENT
  Age: 70 Year
  Sex: Female

DRUGS (1)
  1. IMATINIB [Suspect]
     Active Substance: IMATINIB
     Indication: Chronic myeloid leukaemia
     Dosage: IMATINIB (MESILATE OF)
     Route: 048
     Dates: start: 202203

REACTIONS (1)
  - Motor neurone disease [Not Recovered/Not Resolved]

NARRATIVE: CASE EVENT DATE: 20240101
